FAERS Safety Report 16305879 (Version 2)
Quarter: 2021Q1

REPORT INFORMATION
  Report Type: Spontaneous
  Country: US (occurrence: US)
  Receive Date: 20190513
  Receipt Date: 20210119
  Transmission Date: 20210419
  Serious: Yes (Other)
  Sender: FDA-Public Use
  Company Number: US-ASTRAZENECA-2019SE65807

PATIENT
  Sex: Female

DRUGS (34)
  1. PRILOSEC [Suspect]
     Active Substance: OMEPRAZOLE MAGNESIUM
     Indication: GASTROOESOPHAGEAL REFLUX DISEASE
     Route: 048
     Dates: start: 19900610, end: 20180222
  2. NEXIUM [Suspect]
     Active Substance: ESOMEPRAZOLE MAGNESIUM
     Indication: GASTROOESOPHAGEAL REFLUX DISEASE
     Route: 048
  3. OXYCODONE?ACETAMINOPHEN [Concomitant]
     Active Substance: ACETAMINOPHEN\OXYCODONE HYDROCHLORIDE
     Indication: PAIN
  4. MORPHINE [Concomitant]
     Active Substance: MORPHINE
  5. PROMETHAZINE [Concomitant]
     Active Substance: PROMETHAZINE HYDROCHLORIDE
  6. SINGULAIR [Concomitant]
     Active Substance: MONTELUKAST SODIUM
  7. ZOLPIDEM [Concomitant]
     Active Substance: ZOLPIDEM TARTRATE
  8. DEXILANT [Suspect]
     Active Substance: DEXLANSOPRAZOLE
     Indication: GASTROOESOPHAGEAL REFLUX DISEASE
     Route: 065
     Dates: start: 202010
  9. AMBIEN [Concomitant]
     Active Substance: ZOLPIDEM TARTRATE
  10. PRILOSEC [Suspect]
     Active Substance: OMEPRAZOLE MAGNESIUM
     Indication: GASTROOESOPHAGEAL REFLUX DISEASE
     Route: 048
     Dates: start: 199006, end: 201802
  11. TUMS [Concomitant]
     Active Substance: CALCIUM CARBONATE
  12. NASONEX [Concomitant]
     Active Substance: MOMETASONE FUROATE
  13. AMOXICILLIN. [Concomitant]
     Active Substance: AMOXICILLIN
  14. NAPROXEN. [Concomitant]
     Active Substance: NAPROXEN
  15. DIOVAN [Concomitant]
     Active Substance: VALSARTAN
  16. PSEUDOEPHED [Concomitant]
  17. PANTOPRAZOLE [Suspect]
     Active Substance: PANTOPRAZOLE
     Indication: GASTROOESOPHAGEAL REFLUX DISEASE
     Route: 065
     Dates: start: 201912, end: 202003
  18. ESTRADIOL. [Concomitant]
     Active Substance: ESTRADIOL
  19. NEURONTIN [Concomitant]
     Active Substance: GABAPENTIN
  20. ADVAIR HFA [Concomitant]
     Active Substance: FLUTICASONE PROPIONATE\SALMETEROL XINAFOATE
  21. PROMETRIUM [Concomitant]
     Active Substance: PROGESTERONE
  22. METHADOSE [Concomitant]
     Active Substance: METHADONE HYDROCHLORIDE
  23. TUSSIONEX PENNKINETIC [Concomitant]
     Active Substance: CHLORPHENIRAMINE\HYDROCODONE
  24. PRILOSEC [Suspect]
     Active Substance: OMEPRAZOLE MAGNESIUM
     Indication: GASTROOESOPHAGEAL REFLUX DISEASE
     Dosage: GENERIC
     Route: 065
     Dates: start: 200411, end: 2008
  25. FERROUS SULFATE. [Concomitant]
     Active Substance: FERROUS SULFATE
  26. FLEXERIL [Concomitant]
     Active Substance: CYCLOBENZAPRINE HYDROCHLORIDE
  27. HYZAAR [Concomitant]
     Active Substance: HYDROCHLOROTHIAZIDE\LOSARTAN POTASSIUM
  28. CYMBALTA [Concomitant]
     Active Substance: DULOXETINE HYDROCHLORIDE
  29. CETIRIZINE [Concomitant]
     Active Substance: CETIRIZINE HYDROCHLORIDE
  30. PREDNISONE. [Concomitant]
     Active Substance: PREDNISONE
  31. INDOMETHACIN. [Concomitant]
     Active Substance: INDOMETHACIN
  32. COLCHICINE. [Concomitant]
     Active Substance: COLCHICINE
  33. ULTRACET [Concomitant]
     Active Substance: ACETAMINOPHEN\TRAMADOL HYDROCHLORIDE
  34. VERAPAMIL [Concomitant]
     Active Substance: VERAPAMIL HYDROCHLORIDE

REACTIONS (3)
  - Chronic kidney disease [Unknown]
  - Gastrooesophageal reflux disease [Not Recovered/Not Resolved]
  - Acute kidney injury [Not Recovered/Not Resolved]
